FAERS Safety Report 19715770 (Version 3)
Quarter: 2021Q4

REPORT INFORMATION
  Report Type: Report from Study
  Country: US (occurrence: US)
  Receive Date: 20210818
  Receipt Date: 20211030
  Transmission Date: 20220304
  Serious: No
  Sender: FDA-Public Use
  Company Number: NVSC2021US185613

PATIENT
  Sex: Female

DRUGS (1)
  1. MAYZENT [Suspect]
     Active Substance: SIPONIMOD
     Indication: Product used for unknown indication
     Dosage: UNK
     Route: 065

REACTIONS (2)
  - Head discomfort [Recovered/Resolved]
  - Product use issue [Recovered/Resolved]
